FAERS Safety Report 15945114 (Version 4)
Quarter: 2019Q4

REPORT INFORMATION
  Report Type: Report from Study
  Country: US (occurrence: US)
  Receive Date: 20190211
  Receipt Date: 20191115
  Transmission Date: 20200122
  Serious: Yes (Hospitalization, Other)
  Sender: FDA-Public Use
  Company Number: US-ACADIA PHARMACEUTICALS INC.-ACA-2019-011366

PATIENT
  Age: 54 Year
  Sex: Male

DRUGS (1)
  1. NUPLAZID [Suspect]
     Active Substance: PIMAVANSERIN TARTRATE
     Indication: HALLUCINATION
     Dosage: 34 MG, QD
     Route: 048
     Dates: start: 20181110

REACTIONS (8)
  - Road traffic accident [Unknown]
  - Urinary tract infection [Unknown]
  - Skin abrasion [Unknown]
  - Limb injury [Unknown]
  - Parkinson^s disease [Unknown]
  - Sternal fracture [Unknown]
  - Skin ulcer [Unknown]
  - Infection [Unknown]

NARRATIVE: CASE EVENT DATE: 201811
